FAERS Safety Report 24412435 (Version 1)
Quarter: 2024Q4

REPORT INFORMATION
  Report Type: Spontaneous
  Country: FJ (occurrence: FJ)
  Receive Date: 20241008
  Receipt Date: 20241008
  Transmission Date: 20250115
  Serious: Yes (Hospitalization)
  Sender: NOVARTIS
  Company Number: FJ-002147023-NVSC2024FJ195239

PATIENT
  Age: 45 Year
  Sex: Male

DRUGS (2)
  1. GLIVEC [Suspect]
     Active Substance: IMATINIB MESYLATE
     Indication: Gastrointestinal stromal tumour
     Dosage: 200 MG (2 X 100MG)
     Route: 065
  2. GLIVEC [Suspect]
     Active Substance: IMATINIB MESYLATE
     Dosage: 400 MG, BID
     Route: 065

REACTIONS (3)
  - Urinary tract obstruction [Unknown]
  - General physical health deterioration [Unknown]
  - Mass [Unknown]

NARRATIVE: CASE EVENT DATE: 20240401
